FAERS Safety Report 24732588 (Version 1)
Quarter: 2024Q4

REPORT INFORMATION
  Report Type: Spontaneous
  Country: JP (occurrence: JP)
  Receive Date: 20241213
  Receipt Date: 20241213
  Transmission Date: 20250114
  Serious: Yes (Other)
  Sender: TEVA
  Company Number: JP-TEVA-VS-3273730

PATIENT
  Sex: Female

DRUGS (1)
  1. AZILECT [Suspect]
     Active Substance: RASAGILINE MESYLATE
     Indication: Parkinson^s disease
     Route: 048
     Dates: start: 20231123, end: 20240801

REACTIONS (3)
  - Myelodysplastic syndrome [Not Recovered/Not Resolved]
  - Dyskinesia [Recovering/Resolving]
  - Rheumatoid arthritis [Not Recovered/Not Resolved]
